FAERS Safety Report 4694344-6 (Version None)
Quarter: 2005Q2

REPORT INFORMATION
  Report Type: 
  Country: None (occurrence: None)
  Receive Date: 20050614
  Receipt Date: 20050225
  Transmission Date: 20051028
  Serious: No
  Sender: FDA-Public Use
  Company Number: USA050291857

PATIENT
  Sex: Male

DRUGS (2)
  1. CIALIS [Suspect]
     Dosage: 20 MG DAY
     Dates: start: 20050222
  2. ZIAC [Concomitant]

REACTIONS (2)
  - BACK PAIN [None]
  - BURNING SENSATION [None]
